FAERS Safety Report 6523920-0 (Version None)
Quarter: 2009Q4

REPORT INFORMATION
  Report Type: 
  Country: None (occurrence: None)
  Receive Date: 20091230
  Receipt Date: 20091230
  Transmission Date: 20100525
  Serious: No
  Sender: FDA-Public Use
  Company Number: None

PATIENT
  Age: 70 Year
  Sex: Female
  Weight: 61.2356 kg

DRUGS (8)
  1. COLD REMEDY ORAL MIST [Suspect]
     Indication: NASOPHARYNGITIS
     Dosage: BID FOR ^FEW DAYS^
     Dates: start: 20091001, end: 20091101
  2. TRICOR [Concomitant]
  3. ZETIA [Concomitant]
  4. PREVACID [Concomitant]
  5. TOPROL-XL [Concomitant]
  6. SUCRALFATE [Concomitant]
  7. ZYRTEC [Concomitant]
  8. MULTI-VITAMINS [Concomitant]

REACTIONS (2)
  - AGEUSIA [None]
  - NO THERAPEUTIC RESPONSE [None]
